FAERS Safety Report 17575105 (Version 2)
Quarter: 2020Q2

REPORT INFORMATION
  Report Type: Spontaneous
  Country: US (occurrence: US)
  Receive Date: 20200324
  Receipt Date: 20200520
  Transmission Date: 20200713
  Serious: No
  Sender: FDA-Public Use
  Company Number: US-JNJFOC-20200241386

PATIENT
  Age: 67 Year
  Sex: Female
  Weight: 97.61 kg

DRUGS (4)
  1. DELSYM [Concomitant]
     Active Substance: DEXTROMETHORPHAN
     Indication: COUGH
     Route: 065
     Dates: start: 202002
  2. MUCINEX [Concomitant]
     Active Substance: GUAIFENESIN
     Indication: GENERAL SYMPTOM
     Route: 065
     Dates: start: 202002
  3. SUDAFED 24 HOUR [Suspect]
     Active Substance: PSEUDOEPHEDRINE HYDROCHLORIDE
     Indication: RHINORRHOEA
     Dosage: 1 DOSAGE FORM;
     Route: 048
     Dates: start: 202002, end: 202002
  4. SUDAFED 24 HOUR [Suspect]
     Active Substance: PSEUDOEPHEDRINE HYDROCHLORIDE
     Indication: NASAL CONGESTION

REACTIONS (2)
  - Product use in unapproved indication [Unknown]
  - Therapeutic response unexpected [Unknown]

NARRATIVE: CASE EVENT DATE: 202002
